FAERS Safety Report 16864542 (Version 1)
Quarter: 2019Q3

REPORT INFORMATION
  Report Type: Spontaneous
  Country: HU (occurrence: HU)
  Receive Date: 20190928
  Receipt Date: 20190928
  Transmission Date: 20191005
  Serious: Yes (Other)
  Sender: FDA-Public Use
  Company Number: PHHY2019HU223843

PATIENT
  Sex: Male

DRUGS (4)
  1. GLIVEC [Suspect]
     Active Substance: IMATINIB MESYLATE
     Indication: CHRONIC MYELOID LEUKAEMIA
     Dosage: 400 MG, QD (1X/DAILY)
     Route: 065
     Dates: start: 200804, end: 201009
  2. NILOTINIB [Suspect]
     Active Substance: NILOTINIB
     Indication: CHRONIC MYELOID LEUKAEMIA
     Dosage: 400 MG, QD (2X/DAILY)
     Route: 065
     Dates: start: 201111
  3. NILOTINIB [Suspect]
     Active Substance: NILOTINIB
     Dosage: 300 MG, UNK (2X)
     Route: 065
  4. ALLOPURINOL. [Suspect]
     Active Substance: ALLOPURINOL
     Indication: PRODUCT USED FOR UNKNOWN INDICATION
     Dosage: UNK
     Route: 065

REACTIONS (7)
  - Leukostasis syndrome [Unknown]
  - Hyperhidrosis [Unknown]
  - Fatigue [Unknown]
  - Malaise [Unknown]
  - Drug resistance [Unknown]
  - Splenomegaly [Unknown]
  - Drug ineffective [Unknown]
